FAERS Safety Report 4278909-1 (Version None)
Quarter: 2004Q1

REPORT INFORMATION
  Report Type: 
  Country: None (occurrence: None)
  Receive Date: 20040126
  Receipt Date: 20031024
  Transmission Date: 20041129
  Serious: Yes (Death)
  Sender: FDA-Public Use
  Company Number: PHBS2003JP11875

PATIENT
  Age: 77 Year
  Sex: Male

DRUGS (11)
  1. ATGAM [Concomitant]
     Dosage: 265 MG/D
     Route: 042
     Dates: start: 20030924, end: 20030928
  2. PLATELETS [Concomitant]
     Dates: start: 20030813
  3. FUNGUARD [Concomitant]
     Dosage: 150 MG/D
     Route: 042
     Dates: start: 20030912, end: 20031021
  4. SOLU-MEDROL [Concomitant]
     Dosage: 250 MG/D
     Route: 042
     Dates: start: 20030929, end: 20030929
  5. NEORAL [Suspect]
     Indication: APLASTIC ANAEMIA
     Dosage: 300 MG/DAY
     Route: 048
     Dates: start: 20030829, end: 20031019
  6. CEFOTIAM HYDROCHLORIDE [Concomitant]
     Route: 042
     Dates: start: 20030813
  7. MINOMYCIN [Concomitant]
     Dosage: 200 MG/D
     Route: 042
     Dates: start: 20030901, end: 20030918
  8. GRAN [Concomitant]
     Dosage: 300 UG/D
     Route: 042
     Dates: start: 20030819, end: 20031021
  9. CEFOZOPRAN HYDROCHLORIDE [Concomitant]
  10. OMEGACIN [Concomitant]
     Dosage: 0.9 G/D
     Route: 042
     Dates: start: 20030908, end: 20030916
  11. FLUCONAZOLE [Concomitant]

REACTIONS (6)
  - ASPERGILLOSIS [None]
  - FATIGUE [None]
  - HYPOXIA [None]
  - LOSS OF CONSCIOUSNESS [None]
  - PNEUMONIA ASPERGILLUS [None]
  - THERAPY NON-RESPONDER [None]
